FAERS Safety Report 7091733-X (Version None)
Quarter: 2010Q4

REPORT INFORMATION
  Report Type: 
  Country: None (occurrence: None)
  Receive Date: 20101109
  Receipt Date: 20100831
  Transmission Date: 20110411
  Serious: Yes (Death, Other)
  Sender: FDA-Public Use
  Company Number: PHHY2010JP38609

PATIENT
  Sex: Male
  Weight: 55 kg

DRUGS (17)
  1. EXJADE [Suspect]
     Indication: IRON OVERLOAD
     Dosage: 500 MG, UNK
     Route: 048
     Dates: start: 20091127, end: 20091208
  2. EXJADE [Suspect]
     Dosage: 250 MG, UNK
     Route: 048
     Dates: start: 20091208, end: 20100312
  3. EXJADE [Suspect]
     Dosage: 375 MG, UNK
     Route: 048
     Dates: start: 20100312, end: 20100429
  4. DESFERAL [Concomitant]
     Dosage: 500 MG, UNK
     Route: 030
     Dates: start: 20091117
  5. OPALMON [Concomitant]
     Dosage: 15 UG, UNK
     Route: 048
     Dates: start: 20100429
  6. MUCOSTA [Concomitant]
     Dosage: 300 MG, UNK
     Route: 048
     Dates: start: 20100429
  7. GASMOTIN [Concomitant]
     Dosage: 15 MG, UNK
     Route: 048
     Dates: start: 20100429
  8. GASTER D [Concomitant]
     Dosage: 40 MG, UNK
     Route: 048
     Dates: start: 20100429
  9. BASEN [Concomitant]
     Dosage: 0.9 MG, UNK
     Route: 048
     Dates: start: 20100429
  10. BACTRIM [Concomitant]
     Dosage: UNK
     Route: 048
     Dates: start: 20100429
  11. MYSLEE [Concomitant]
     Dosage: 10 MG, UNK
     Route: 048
     Dates: start: 20100429
  12. SHAKUYAKUKANZOUTOU [Concomitant]
     Dosage: 7.5 MG, UNK
     Route: 048
     Dates: start: 20100429
  13. STARASID [Concomitant]
     Dosage: 200 MG, UNK
     Route: 048
     Dates: start: 20100429
  14. PREDNISOLONE [Concomitant]
     Dosage: 10 MG, UNK
     Route: 048
     Dates: start: 20100429
  15. AMARYL [Concomitant]
     Dosage: 3 MG, UNK
     Route: 048
     Dates: start: 20100429
  16. ITRIZOLE [Concomitant]
     Dosage: 20 ML, UNK
     Route: 048
     Dates: start: 20100429
  17. HYDREA [Concomitant]
     Dosage: 1000 MG, UNK
     Route: 048
     Dates: start: 20100429

REACTIONS (3)
  - ABDOMINAL DISCOMFORT [None]
  - CEREBRAL HAEMORRHAGE [None]
  - FALL [None]
